FAERS Safety Report 7015221-1 (Version None)
Quarter: 2010Q3

REPORT INFORMATION
  Report Type: 
  Country: None (occurrence: None)
  Receive Date: 20100927
  Receipt Date: 20100917
  Transmission Date: 20110219
  Serious: Yes (Other)
  Sender: FDA-Public Use
  Company Number: PHFR2010GB04137

PATIENT
  Age: 36 Year
  Sex: Male

DRUGS (2)
  1. CLOZAPINE [Suspect]
     Dosage: UNK
     Dates: start: 20020127, end: 20090625
  2. ZAPONEX [Suspect]
     Dosage: 400 MG, QD
     Route: 048
     Dates: start: 20090626

REACTIONS (5)
  - DYSPHAGIA [None]
  - OESOPHAGEAL ACHALASIA [None]
  - OESOPHAGEAL HYPOMOTILITY [None]
  - OESOPHAGEAL OPERATION [None]
  - OESOPHAGITIS [None]
